FAERS Safety Report 7782659-4 (Version None)
Quarter: 2011Q3

REPORT INFORMATION
  Report Type: 
  Country: None (occurrence: None)
  Receive Date: 20110928
  Receipt Date: 20110916
  Transmission Date: 20111222
  Serious: No
  Sender: FDA-Public Use
  Company Number: PHEH2011US04628

PATIENT
  Sex: Female

DRUGS (9)
  1. POTASSIUM [Concomitant]
  2. EFFEXOR [Concomitant]
  3. OXYCODONE [Concomitant]
  4. FENTANYL [Concomitant]
  5. TASIGNA [Suspect]
     Dosage: 150 MG, UNK
     Dates: start: 20100801
  6. ATIVAN [Concomitant]
  7. OXYCODONE HCL [Concomitant]
  8. SENOKOT [Concomitant]
  9. LASIX [Concomitant]
     Dosage: 40 MG, UNK

REACTIONS (4)
  - CARTILAGE INJURY [None]
  - MEMORY IMPAIRMENT [None]
  - WEIGHT INCREASED [None]
  - FLUID RETENTION [None]
